FAERS Safety Report 24049653 (Version 1)
Quarter: 2024Q3

REPORT INFORMATION
  Report Type: Spontaneous
  Country: US (occurrence: US)
  Receive Date: 20240704
  Receipt Date: 20240704
  Transmission Date: 20241016
  Serious: Yes (Other)
  Sender: RANBAXY
  Company Number: US-SUN PHARMACEUTICAL INDUSTRIES LTD-2024R1-454280

PATIENT
  Age: 30 Year
  Sex: Male

DRUGS (2)
  1. TESTOSTERONE [Suspect]
     Active Substance: TESTOSTERONE
     Indication: Product used for unknown indication
     Route: 065
  2. TRENBOLONE [Suspect]
     Active Substance: TRENBOLONE
     Indication: Product used for unknown indication
     Route: 065

REACTIONS (1)
  - Hepatic failure [Unknown]
